FAERS Safety Report 13765662 (Version 1)
Quarter: 2017Q3

REPORT INFORMATION
  Report Type: Spontaneous
  Country: GB (occurrence: GB)
  Receive Date: 20170718
  Receipt Date: 20170718
  Transmission Date: 20171127
  Serious: Yes (Hospitalization)
  Sender: FDA-Public Use
  Company Number: GB-ABBVIE-17P-167-2041890-00

PATIENT
  Sex: Female

DRUGS (1)
  1. EPILIM [Suspect]
     Active Substance: VALPROATE SODIUM
     Indication: EPILEPSY
     Dosage: 12 G/300 ML
     Route: 065

REACTIONS (3)
  - Viral infection [Unknown]
  - Drug ineffective [Unknown]
  - Seizure [Unknown]
